FAERS Safety Report 5972888-4 (Version None)
Quarter: 2008Q4

REPORT INFORMATION
  Report Type: 
  Country: None (occurrence: None)
  Receive Date: 20081201
  Receipt Date: 20081119
  Transmission Date: 20090506
  Serious: Yes (Hospitalization)
  Sender: FDA-Public Use
  Company Number: PHHY2008JP29280

PATIENT

DRUGS (1)
  1. RITALIN [Suspect]
     Indication: ANXIETY DISORDER
     Dosage: 70 MG UNK
     Route: 048

REACTIONS (1)
  - CARDIAC FAILURE ACUTE [None]
